FAERS Safety Report 7246142-7 (Version None)
Quarter: 2011Q1

REPORT INFORMATION
  Report Type: 
  Country: None (occurrence: None)
  Receive Date: 20110126
  Receipt Date: 20110119
  Transmission Date: 20110831
  Serious: Yes (Other)
  Sender: FDA-Public Use
  Company Number: A0908767A

PATIENT
  Sex: Female

DRUGS (1)
  1. PAXIL [Suspect]
     Indication: ANXIETY
     Route: 048

REACTIONS (12)
  - ANXIETY [None]
  - WITHDRAWAL SYNDROME [None]
  - HEADACHE [None]
  - SUICIDAL IDEATION [None]
  - ALCOHOLISM [None]
  - CHILLS [None]
  - VOMITING [None]
  - EMOTIONAL DISORDER [None]
  - NAUSEA [None]
  - DEPRESSION [None]
  - THEFT [None]
  - DIZZINESS [None]
